FAERS Safety Report 8714727 (Version 2)
Quarter: 2013Q2

REPORT INFORMATION
  Report Type: Spontaneous
  Country: FR (occurrence: FR)
  Receive Date: 20120809
  Receipt Date: 20130611
  Transmission Date: 20140414
  Serious: Yes (Hospitalization)
  Sender: FDA-Public Use
  Company Number: FR-SANOFI-AVENTIS-2012SA054826

PATIENT
  Age: 59 Year
  Sex: Female

DRUGS (9)
  1. LOVENOX [Suspect]
     Indication: THROMBOSIS PROPHYLAXIS
     Route: 058
     Dates: start: 20120607, end: 20120630
  2. CALCIPARINE [Suspect]
     Indication: THROMBOSIS PROPHYLAXIS
     Route: 058
     Dates: start: 20120701, end: 20120710
  3. AMOXICILLIN [Suspect]
     Indication: INTERVERTEBRAL DISCITIS
     Dosage: FREQUENCY: 6 TIMES A DAY
     Route: 042
     Dates: start: 20120617, end: 20120628
  4. ATACAND [Concomitant]
     Dates: end: 20120630
  5. TAHOR [Concomitant]
     Dates: end: 20120630
  6. TOPALGIC [Concomitant]
     Dates: start: 20120605
  7. DAFALGAN [Concomitant]
     Dates: start: 20120605
  8. ROCEPHINE [Concomitant]
     Indication: INTERVERTEBRAL DISCITIS
     Dates: start: 20120606, end: 20120616
  9. TARGOCID [Concomitant]
     Indication: INTERVERTEBRAL DISCITIS
     Dates: start: 20120628, end: 20120712

REACTIONS (4)
  - Cholestasis [Recovered/Resolved]
  - Pyrexia [Recovered/Resolved]
  - Rash [Recovered/Resolved]
  - Eosinophilia [Recovered/Resolved]
